FAERS Safety Report 24888622 (Version 2)
Quarter: 2025Q1

REPORT INFORMATION
  Report Type: Spontaneous
  Country: US (occurrence: US)
  Receive Date: 20250127
  Receipt Date: 20250228
  Transmission Date: 20250408
  Serious: Yes (Hospitalization, Other)
  Sender: AUROBINDO
  Company Number: US-AUROBINDO-AUR-APL-2025-003780

PATIENT
  Age: 6 Decade
  Sex: Female

DRUGS (4)
  1. KETAMINE HYDROCHLORIDE [Suspect]
     Active Substance: KETAMINE HYDROCHLORIDE
     Indication: Depression
     Route: 065
  2. CLOZAPINE [Suspect]
     Active Substance: CLOZAPINE
     Indication: Bipolar disorder
     Route: 065
  3. OLANZAPINE [Suspect]
     Active Substance: OLANZAPINE
     Indication: Bipolar disorder
     Route: 065
  4. FLUVOXAMINE [Suspect]
     Active Substance: FLUVOXAMINE
     Indication: Bipolar disorder
     Route: 065

REACTIONS (10)
  - Suicidal ideation [Unknown]
  - Poor quality sleep [Unknown]
  - Impaired work ability [Unknown]
  - Psychotic disorder [Unknown]
  - Delusion [Unknown]
  - Paranoia [Unknown]
  - Agitation [Unknown]
  - Condition aggravated [Unknown]
  - Anxiety [Recovering/Resolving]
  - Amnesia [Recovering/Resolving]
